FAERS Safety Report 10770004 (Version 1)
Quarter: 2015Q1

REPORT INFORMATION
  Report Type: Spontaneous
  Country: FR (occurrence: FR)
  Receive Date: 20150206
  Receipt Date: 20150206
  Transmission Date: 20150721
  Serious: Yes (Life-Threatening)
  Sender: FDA-Public Use
  Company Number: FR-PFIZER INC-2015047660

PATIENT
  Age: 43 Year
  Sex: Female

DRUGS (3)
  1. REMIFENTANIL MYLAN [Suspect]
     Active Substance: REMIFENTANIL
     Indication: ANAESTHESIA
     Dosage: 400 TO 800 MG/HOUR, SINGLE
     Route: 042
     Dates: start: 20141028, end: 20141028
  2. XANAX [Suspect]
     Active Substance: ALPRAZOLAM
     Indication: ANAESTHETIC PREMEDICATION
     Dosage: 0.50 MG, SINGLE
     Route: 048
     Dates: start: 20141028, end: 20141028
  3. CEFAZOLINE MYLAN [Suspect]
     Active Substance: CEFAZOLIN SODIUM
     Indication: ANAESTHETIC PREMEDICATION
     Dosage: 2 G, 2X/DAY
     Route: 042
     Dates: start: 20141028, end: 20141028

REACTIONS (1)
  - Respiratory arrest [Recovered/Resolved]

NARRATIVE: CASE EVENT DATE: 20141028
